FAERS Safety Report 10214192 (Version 1)
Quarter: 2014Q2

REPORT INFORMATION
  Report Type: Spontaneous
  Country: DE (occurrence: None)
  Receive Date: 20140530
  Receipt Date: 20140530
  Transmission Date: 20141212
  Serious: Yes (Other)
  Sender: FDA-Public Use
  Company Number: 2014P1004426

PATIENT
  Age: 70 Year
  Sex: Female

DRUGS (3)
  1. AMLODIPINE [Suspect]
     Indication: HYPERTENSIVE CRISIS
  2. AMLODIPINE [Suspect]
     Indication: LABILE HYPERTENSION
  3. UNSPECIFIED ANTIHYPERTENSIVE DRUGS [Concomitant]

REACTIONS (12)
  - Dysphagia [None]
  - Dystonia [None]
  - Dysphonia [None]
  - Dysarthria [None]
  - Bruxism [None]
  - Blepharospasm [None]
  - Torticollis [None]
  - Sleep disorder [None]
  - Anxiety [None]
  - Akathisia [None]
  - Depression [None]
  - Decreased appetite [None]
